FAERS Safety Report 9288623 (Version 2)
Quarter: 2013Q3

REPORT INFORMATION
  Report Type: Spontaneous
  Country: US (occurrence: US)
  Receive Date: 20130514
  Receipt Date: 20130813
  Transmission Date: 20140515
  Serious: Yes (Other)
  Sender: FDA-Public Use
  Company Number: US-TEVA-403917USA

PATIENT
  Age: 41 Year
  Sex: Female

DRUGS (1)
  1. COPAXONE [Suspect]
     Indication: MULTIPLE SCLEROSIS
     Dates: end: 20130722

REACTIONS (4)
  - Neoplasm malignant [Unknown]
  - Lymphoma [Unknown]
  - Laboratory test abnormal [Unknown]
  - Injection site erythema [Unknown]
